FAERS Safety Report 6172059-5 (Version None)
Quarter: 2009Q2

REPORT INFORMATION
  Report Type: 
  Country: None (occurrence: None)
  Receive Date: 20090429
  Receipt Date: 20090420
  Transmission Date: 20091009
  Serious: Yes (Other)
  Sender: FDA-Public Use
  Company Number: US-JNJCH-2009010953

PATIENT
  Age: 17 Year
  Sex: Female
  Weight: 65.8 kg

DRUGS (1)
  1. LISTERINE WHITENING PRE-BRUSH RINSE [Suspect]
     Indication: DENTAL CARE
     Dosage: TEXT:RECOMMENDED DOSAGE ONCE
     Route: 048
     Dates: start: 20090416, end: 20090416

REACTIONS (5)
  - CHEILITIS [None]
  - CONDITION AGGRAVATED [None]
  - HYPOPHAGIA [None]
  - LIP SWELLING [None]
  - STOMATITIS [None]
